FAERS Safety Report 7623284-5 (Version None)
Quarter: 2011Q3

REPORT INFORMATION
  Report Type: 
  Country: None (occurrence: None)
  Receive Date: 20110720
  Receipt Date: 20110708
  Transmission Date: 20111222
  Serious: Yes (Other)
  Sender: FDA-Public Use
  Company Number: US-SANOFI-AVENTIS-2011SA043891

PATIENT
  Age: 76 Year
  Sex: Female
  Weight: 89 kg

DRUGS (12)
  1. ASPIRIN [Concomitant]
  2. THIAZIDES [Concomitant]
  3. POTASSIUM CHLORIDE [Concomitant]
  4. VITAMIN D [Concomitant]
  5. CARVEDILOL [Concomitant]
  6. NIASPAN [Concomitant]
  7. COUMADIN [Concomitant]
  8. ATORVASTATIN [Concomitant]
  9. DRONEDARONE HCL [Suspect]
     Indication: ATRIAL FIBRILLATION
     Route: 048
     Dates: start: 20101129, end: 20110518
  10. AVAPRO [Concomitant]
  11. PROZAC [Concomitant]
  12. PROTONIX [Concomitant]
     Dates: start: 20101129

REACTIONS (1)
  - RENAL FAILURE ACUTE [None]
